FAERS Safety Report 7771568-2 (Version None)
Quarter: 2011Q3

REPORT INFORMATION
  Report Type: 
  Country: None (occurrence: None)
  Receive Date: 20110922
  Receipt Date: 20110222
  Transmission Date: 20111222
  Serious: No
  Sender: FDA-Public Use
  Company Number: US-ASTRAZENECA-2011SE10278

PATIENT
  Sex: Male

DRUGS (8)
  1. TRAZODONE HYDROCHLORIDE [Concomitant]
     Indication: DEPRESSION
  2. TRAZODONE HYDROCHLORIDE [Concomitant]
     Indication: ANXIETY
  3. PROZAC [Concomitant]
     Indication: ANXIETY
  4. SEROQUEL [Suspect]
     Indication: ANXIETY
     Dosage: ONE AND A HALF BY MOUTH AT BEDTIME
     Route: 048
  5. WELLBUTRIN [Concomitant]
     Indication: DEPRESSION
  6. SEROQUEL [Suspect]
     Indication: DEPRESSION
     Dosage: ONE AND A HALF BY MOUTH AT BEDTIME
     Route: 048
  7. PROZAC [Concomitant]
     Indication: DEPRESSION
  8. WELLBUTRIN [Concomitant]
     Indication: ANXIETY

REACTIONS (4)
  - DRUG INEFFECTIVE [None]
  - DRUG DOSE OMISSION [None]
  - IMPAIRED WORK ABILITY [None]
  - DEPRESSION [None]
